FAERS Safety Report 7325826-6 (Version None)
Quarter: 2011Q1

REPORT INFORMATION
  Report Type: 
  Country: None (occurrence: None)
  Receive Date: 20110302
  Receipt Date: 20110215
  Transmission Date: 20110831
  Serious: Yes (Other)
  Sender: FDA-Public Use
  Company Number: AT-AMGEN-KDC412307

PATIENT
  Age: 29 Year
  Sex: Female

DRUGS (1)
  1. DENOSUMAB [Suspect]
     Indication: BONE GIANT CELL TUMOUR
     Dosage: 120 MG, QMO
     Route: 058
     Dates: start: 20090326

REACTIONS (1)
  - OSTEONECROSIS OF JAW [None]
